FAERS Safety Report 21871942 (Version 3)
Quarter: 2023Q1

REPORT INFORMATION
  Report Type: Spontaneous
  Country: US (occurrence: US)
  Receive Date: 20230117
  Receipt Date: 20230215
  Transmission Date: 20230417
  Serious: No
  Sender: FDA-Public Use
  Company Number: US-PFIZER INC-PV202200103520

PATIENT
  Age: 66 Year
  Sex: Female
  Weight: 68.04 kg

DRUGS (4)
  1. IBRANCE [Suspect]
     Active Substance: PALBOCICLIB
     Indication: Breast cancer metastatic
     Dosage: 125 MG, CYCLIC (ONCE DAILY, 3 WEEKS ON AND 7 DAYS OFF)
     Route: 048
     Dates: start: 20220706, end: 20220802
  2. IBRANCE [Suspect]
     Active Substance: PALBOCICLIB
     Dosage: 125 MG, CYCLIC (ONCE DAILY, 3 WEEKS ON AND 7 DAYS OFF)
     Route: 048
     Dates: start: 20220901, end: 20221011
  3. IBRANCE [Suspect]
     Active Substance: PALBOCICLIB
     Dosage: 125 MG, CYCLIC (ONCE DAILY, 3 WEEKS ON AND 7 DAYS OFF)
     Route: 048
     Dates: start: 20221109, end: 20230102
  4. IBRANCE [Suspect]
     Active Substance: PALBOCICLIB
     Dosage: 100 MG
     Dates: start: 20230109

REACTIONS (3)
  - Rash pruritic [Recovered/Resolved]
  - White blood cell count decreased [Recovering/Resolving]
  - Full blood count decreased [Not Recovered/Not Resolved]

NARRATIVE: CASE EVENT DATE: 20220701
